FAERS Safety Report 19783859 (Version 1)
Quarter: 2021Q3

REPORT INFORMATION
  Report Type: Spontaneous
  Country: US (occurrence: US)
  Receive Date: 20210902
  Receipt Date: 20210902
  Transmission Date: 20211014
  Serious: Yes (Death)
  Sender: FDA-Public Use
  Company Number: None

PATIENT
  Age: 65 Year
  Sex: Male

DRUGS (5)
  1. METOPROLOL TARTRATE 25 MG [Concomitant]
     Active Substance: METOPROLOL TARTRATE
     Dates: start: 20200901, end: 20210901
  2. MYCOPHENOLATE [Suspect]
     Active Substance: MYCOPHENOLIC ACID
     Indication: RENAL TRANSPLANT
     Route: 048
     Dates: start: 20200514, end: 20210901
  3. ELIQUIS [Concomitant]
     Active Substance: APIXABAN
     Dates: start: 20200901, end: 20210901
  4. TACROLIMUS. [Suspect]
     Active Substance: TACROLIMUS
     Indication: RENAL TRANSPLANT
     Route: 048
     Dates: start: 20200501, end: 20210901
  5. AMIODARONE 200MG [Concomitant]
     Active Substance: AMIODARONE
     Dates: start: 20210901, end: 20210901

REACTIONS (1)
  - Death [None]

NARRATIVE: CASE EVENT DATE: 20210901
